FAERS Safety Report 23360922 (Version 1)
Quarter: 2023Q4

REPORT INFORMATION
  Report Type: Spontaneous
  Country: US (occurrence: None)
  Receive Date: 20231229
  Receipt Date: 20231229
  Transmission Date: 20240110
  Serious: Yes (Hospitalization)
  Sender: FDA-Public Use
  Company Number: None

PATIENT
  Age: 66 Year
  Sex: Male
  Weight: 86.2 kg

DRUGS (1)
  1. TECARTUS [Suspect]
     Active Substance: BREXUCABTAGENE AUTOLEUCEL

REACTIONS (9)
  - Cytokine release syndrome [None]
  - Somnolence [None]
  - Lethargy [None]
  - Loss of personal independence in daily activities [None]
  - Tremor [None]
  - Fine motor skill dysfunction [None]
  - Status epilepticus [None]
  - Mastoid effusion [None]
  - Sinus disorder [None]

NARRATIVE: CASE EVENT DATE: 20231005
